FAERS Safety Report 13004057 (Version 1)
Quarter: 2016Q4

REPORT INFORMATION
  Report Type: Spontaneous
  Country: US (occurrence: US)
  Receive Date: 20161206
  Receipt Date: 20161206
  Transmission Date: 20170207
  Serious: No
  Sender: FDA-Public Use
  Company Number: US-JAZZ-2016-US-020095

PATIENT
  Sex: Female
  Weight: 57.6 kg

DRUGS (27)
  1. ESTRACE [Concomitant]
     Active Substance: ESTRADIOL
  2. POTASSIUM CITRATE. [Concomitant]
     Active Substance: POTASSIUM CITRATE
  3. PROPRANOLOL [Concomitant]
     Active Substance: PROPRANOLOL\PROPRANOLOL HYDROCHLORIDE
  4. XYREM [Suspect]
     Active Substance: SODIUM OXYBATE
     Dosage: DOSE ADJUSTMENT
     Route: 048
     Dates: start: 2016, end: 2016
  5. ABILIFY [Concomitant]
     Active Substance: ARIPIPRAZOLE
  6. JANUVIA [Concomitant]
     Active Substance: SITAGLIPTIN PHOSPHATE
  7. CALCIUM [Concomitant]
     Active Substance: CALCIUM
  8. XYREM [Suspect]
     Active Substance: SODIUM OXYBATE
     Indication: NARCOLEPSY
     Dosage: 2.25 G, BID
     Route: 048
     Dates: start: 20160922, end: 2016
  9. LATANOPROST. [Concomitant]
     Active Substance: LATANOPROST
  10. MAGNESIUM [Concomitant]
     Active Substance: MAGNESIUM
  11. MUPIROCIN. [Concomitant]
     Active Substance: MUPIROCIN
  12. PRAVASTATIN SODIUM. [Concomitant]
     Active Substance: PRAVASTATIN SODIUM
  13. LISINOPRIL. [Concomitant]
     Active Substance: LISINOPRIL
  14. MODAFINIL. [Concomitant]
     Active Substance: MODAFINIL
  15. SEROQUEL [Concomitant]
     Active Substance: QUETIAPINE FUMARATE
  16. VIIBRYD [Concomitant]
     Active Substance: VILAZODONE HYDROCHLORIDE
  17. XYREM [Suspect]
     Active Substance: SODIUM OXYBATE
     Dosage: 3.75 G, BID
     Route: 048
     Dates: start: 2016
  18. LEVOTHYROXINE. [Concomitant]
     Active Substance: LEVOTHYROXINE
  19. LORAZEPAM. [Concomitant]
     Active Substance: LORAZEPAM
  20. METFORMIN HCL [Concomitant]
     Active Substance: METFORMIN HYDROCHLORIDE
  21. RECLAST [Concomitant]
     Active Substance: ZOLEDRONIC ACID
  22. TYLENOL EXTRA STRENGTH [Concomitant]
     Active Substance: ACETAMINOPHEN
  23. LANTUS [Concomitant]
     Active Substance: INSULIN GLARGINE
  24. LASIX [Concomitant]
     Active Substance: FUROSEMIDE
  25. PRILOSEC [Concomitant]
     Active Substance: OMEPRAZOLE MAGNESIUM
  26. SYNTHROID [Concomitant]
     Active Substance: LEVOTHYROXINE SODIUM
  27. VITAMIN B12 [Concomitant]
     Active Substance: CYANOCOBALAMIN

REACTIONS (2)
  - Fatigue [Recovering/Resolving]
  - Cystitis [Unknown]
